FAERS Safety Report 8032057-3 (Version None)
Quarter: 2012Q1

REPORT INFORMATION
  Report Type: 
  Country: None (occurrence: None)
  Receive Date: 20120109
  Receipt Date: 20110818
  Transmission Date: 20120608
  Serious: No
  Sender: FDA-Public Use
  Company Number: US-ABBOTT-11P-163-0848367-00

PATIENT
  Sex: Male
  Weight: 76.726 kg

DRUGS (3)
  1. UNKNOWN ANTI DEPRESSANT [Concomitant]
     Indication: DEPRESSION
     Dates: start: 20110601
  2. VICODIN [Suspect]
     Indication: PAIN
  3. VITAMIN D [Concomitant]
     Indication: VITAMIN SUPPLEMENTATION

REACTIONS (2)
  - PRODUCT TASTE ABNORMAL [None]
  - DRUG INEFFECTIVE [None]
